FAERS Safety Report 7701732-X (Version None)
Quarter: 2011Q3

REPORT INFORMATION
  Report Type: 
  Country: None (occurrence: None)
  Receive Date: 20110822
  Receipt Date: 20110818
  Transmission Date: 20111222
  Serious: Yes (Hospitalization, Other)
  Sender: FDA-Public Use
  Company Number: US-PFIZER INC-2011113919

PATIENT
  Sex: Male

DRUGS (3)
  1. SUTENT [Suspect]
     Dosage: 37.5MG, FOR 21 DAYS EVERY 28 DAYS
     Dates: start: 20110818
  2. SUTENT [Suspect]
     Dosage: 50 MG, FOR 28 DAYS EVERY 42 DAYS
     Dates: start: 20110618, end: 20110711
  3. SUTENT [Suspect]
     Indication: METASTATIC RENAL CELL CARCINOMA
     Dosage: 50 MG, FOR 28 DAYS EVERY 42 DAYS
     Route: 048
     Dates: start: 20110517, end: 20110101

REACTIONS (3)
  - GASTROINTESTINAL HAEMORRHAGE [None]
  - HYPERTENSION [None]
  - CYANOSIS [None]
